FAERS Safety Report 6249161-2 (Version None)
Quarter: 2009Q2

REPORT INFORMATION
  Report Type: 
  Country: None (occurrence: None)
  Receive Date: 20090624
  Receipt Date: 20090612
  Transmission Date: 20091009
  Serious: Yes (Life-Threatening, Other)
  Sender: FDA-Public Use
  Company Number: 2009AL004010

PATIENT
  Age: 79 Year
  Sex: Female

DRUGS (4)
  1. NAPROXEN [Suspect]
     Indication: ARTHRALGIA
     Dosage: 250 MG; PO
     Route: 048
     Dates: start: 20090416, end: 20090516
  2. AMLODIPINE [Concomitant]
  3. LOSARTAN POTASSIUM [Concomitant]
  4. ATENOLOL [Concomitant]

REACTIONS (3)
  - DUODENAL ULCER [None]
  - GASTROINTESTINAL HAEMORRHAGE [None]
  - HAEMOGLOBIN DECREASED [None]
